FAERS Safety Report 24651972 (Version 1)
Quarter: 2024Q4

REPORT INFORMATION
  Report Type: Spontaneous
  Country: US (occurrence: None)
  Receive Date: 20241121
  Receipt Date: 20241121
  Transmission Date: 20250114
  Serious: Yes (Other)
  Sender: Public
  Company Number: None

PATIENT
  Age: 74 Year
  Sex: Female
  Weight: 65.77 kg

DRUGS (5)
  1. PAXLOVID [Suspect]
     Active Substance: NIRMATRELVIR\RITONAVIR
     Indication: COVID-19
     Dosage: FREQUENCY : TWICE A WEEK;?
     Route: 048
     Dates: start: 20240930, end: 20241003
  2. VITAMIN D [Concomitant]
     Active Substance: VITAMIN D NOS
  3. B12 injections [Concomitant]
  4. THORNE ADVANCED DIGESTIVE ENZYMES [Concomitant]
  5. SBIProtect Powder Dietary Supplement [Concomitant]

REACTIONS (10)
  - Oropharyngeal pain [None]
  - Headache [None]
  - Myalgia [None]
  - Pyrexia [None]
  - Urticaria [None]
  - Urticaria [None]
  - Pruritus [None]
  - Skin exfoliation [None]
  - Skin discolouration [None]
  - Pain of skin [None]

NARRATIVE: CASE EVENT DATE: 20241003
